FAERS Safety Report 6028221-5 (Version None)
Quarter: 2009Q1

REPORT INFORMATION
  Report Type: 
  Country: None (occurrence: None)
  Receive Date: 20090106
  Receipt Date: 20081224
  Transmission Date: 20090719
  Serious: Yes (Death)
  Sender: FDA-Public Use
  Company Number: US-BAYER-200830167GPV

PATIENT
  Age: 79 Year
  Sex: Male

DRUGS (15)
  1. CAMPATH [Suspect]
     Indication: CHRONIC LYMPHOCYTIC LEUKAEMIA
     Route: 042
     Dates: start: 20080408, end: 20080410
  2. CAMPATH [Suspect]
     Route: 042
     Dates: start: 20080415, end: 20080417
  3. CAMPATH [Suspect]
     Route: 042
     Dates: start: 20080519, end: 20080521
  4. CAMPATH [Suspect]
     Route: 042
     Dates: start: 20080818, end: 20080820
  5. CAMPATH [Suspect]
     Route: 042
     Dates: start: 20080618, end: 20080620
  6. CAMPATH [Suspect]
     Route: 042
     Dates: start: 20080718, end: 20080720
  7. CAMPATH [Suspect]
     Route: 042
     Dates: start: 20080915, end: 20080917
  8. FLUDARA [Suspect]
     Indication: CHRONIC LYMPHOCYTIC LEUKAEMIA
     Route: 042
     Dates: start: 20080415, end: 20080417
  9. FLUDARA [Suspect]
     Route: 042
     Dates: start: 20080618, end: 20080620
  10. FLUDARA [Suspect]
     Route: 042
     Dates: start: 20080818, end: 20080820
  11. FLUDARA [Suspect]
     Route: 042
     Dates: start: 20080915, end: 20080917
  12. FLUDARA [Suspect]
     Route: 042
     Dates: start: 20080718, end: 20080720
  13. FLUDARA [Suspect]
     Route: 042
     Dates: start: 20080519, end: 20080521
  14. ACYCLOVIR [Concomitant]
     Indication: ANTIVIRAL PROPHYLAXIS
     Dates: start: 20080408
  15. BISEPTOL [Concomitant]
     Indication: INFECTION PROPHYLAXIS
     Dates: start: 20080408

REACTIONS (1)
  - CARDIOPULMONARY FAILURE [None]
